FAERS Safety Report 8998604 (Version 1)
Quarter: 2013Q1

REPORT INFORMATION
  Report Type: Spontaneous
  Country: US (occurrence: US)
  Receive Date: 20130103
  Receipt Date: 20130103
  Transmission Date: 20140127
  Serious: No
  Sender: FDA-Public Use
  Company Number: US-ASTRAZENECA-2012SE95702

PATIENT
  Sex: Female

DRUGS (4)
  1. NEXIUM [Suspect]
     Indication: GASTROOESOPHAGEAL REFLUX DISEASE
     Route: 048
  2. NEXIUM [Suspect]
     Indication: GASTROOESOPHAGEAL REFLUX DISEASE
     Dosage: 1-2 TIMES PER DAY
     Route: 048
  3. DEPEN TITRATE [Concomitant]
     Indication: SCLERODERMA
  4. VITAMIN D3 [Concomitant]
     Indication: SUPPLEMENTATION THERAPY

REACTIONS (4)
  - Chronic obstructive pulmonary disease [Unknown]
  - Blood cholesterol increased [Unknown]
  - Gastrooesophageal reflux disease [Unknown]
  - Off label use [Unknown]
